FAERS Safety Report 9154600 (Version 2)
Quarter: 2013Q1

REPORT INFORMATION
  Report Type: Spontaneous
  Country: US (occurrence: None)
  Receive Date: 20130205
  Receipt Date: 20130307
  Transmission Date: 20140127
  Serious: Yes (Hospitalization)
  Sender: FDA-Public Use
  Company Number: DSU-2013-01066

PATIENT
  Age: 68 Year
  Sex: Male
  Weight: 86.18 kg

DRUGS (4)
  1. OLMESARTAN MEDOXOMIL + HCTZ [Suspect]
     Indication: HYPERTENSION
     Dosage: 40/?? MG (QD), PER ORAL
     Route: 048
     Dates: start: 2010, end: 201206
  2. LITHIUM CARBONATE (LITHIUM CARBONATE) (LITHIUM CARBONATE) [Concomitant]
  3. ADVAIR (FLUTICASONE PROPIONATE, SALMETEROL XINAFOATE) (FLUTICASONE PROPIONATE, SALMETEROL XINAFOATE) [Concomitant]
  4. CELEBREX (CELECOXIB) (CELECOXIB) [Concomitant]

REACTIONS (1)
  - Alcoholic seizure [None]
